FAERS Safety Report 5680916-9 (Version None)
Quarter: 2008Q1

REPORT INFORMATION
  Report Type: 
  Country: None (occurrence: None)
  Receive Date: 20080326
  Receipt Date: 20080314
  Transmission Date: 20080703
  Serious: Yes (Hospitalization)
  Sender: FDA-Public Use
  Company Number: DE-PFIZER INC-2007095228

PATIENT
  Sex: Female

DRUGS (1)
  1. LYRICA [Suspect]
     Indication: CENTRAL PAIN SYNDROME
     Dosage: DAILY DOSE:150MG
     Route: 048

REACTIONS (2)
  - AKATHISIA [None]
  - MYOCLONUS [None]
